FAERS Safety Report 16267011 (Version 1)
Quarter: 2019Q2

REPORT INFORMATION
  Report Type: Report from Study
  Country: CN (occurrence: CN)
  Receive Date: 20190502
  Receipt Date: 20190502
  Transmission Date: 20190711
  Serious: Yes (Other)
  Sender: FDA-Public Use
  Company Number: CN-JNJFOC-20190435803

PATIENT

DRUGS (1)
  1. INVEGA [Suspect]
     Active Substance: PALIPERIDONE
     Indication: SCHIZOPHRENIA
     Route: 048

REACTIONS (7)
  - Constipation [Unknown]
  - Arrhythmia [Unknown]
  - Dry mouth [Unknown]
  - Dizziness [Unknown]
  - Akathisia [Unknown]
  - Somnolence [Unknown]
  - Tremor [Unknown]
